FAERS Safety Report 12376054 (Version 5)
Quarter: 2016Q3

REPORT INFORMATION
  Report Type: Report from Study
  Country: CA (occurrence: CA)
  Receive Date: 20160517
  Receipt Date: 20160929
  Transmission Date: 20161109
  Serious: Yes (Other)
  Sender: FDA-Public Use
  Company Number: CA-PFIZER INC-2015364793

PATIENT
  Age: 64 Year
  Sex: Female

DRUGS (6)
  1. VITAMIN B12 [Concomitant]
     Active Substance: CYANOCOBALAMIN
     Dosage: UNK
  2. CARBOCAL [Concomitant]
     Active Substance: CALCIUM CARBONATE
     Dosage: UNK
  3. ENTYVIO [Suspect]
     Active Substance: VEDOLIZUMAB
     Indication: CROHN^S DISEASE
     Dosage: 300 MG, UNK
     Route: 042
     Dates: start: 20150713
  4. IRON [Concomitant]
     Active Substance: IRON
     Dosage: UNK
  5. PANTOLOC [Suspect]
     Active Substance: PANTOPRAZOLE SODIUM
     Dosage: 80 MG, UNK
     Route: 065
  6. VITALUX /00322001/ [Concomitant]
     Dosage: UNK

REACTIONS (8)
  - Ocular discomfort [Unknown]
  - Erythema [Unknown]
  - Weight fluctuation [Not Recovered/Not Resolved]
  - Impatience [Unknown]
  - Vision blurred [Unknown]
  - Fatigue [Unknown]
  - Angina pectoris [Unknown]
  - Eye irritation [Unknown]

NARRATIVE: CASE EVENT DATE: 2015
